FAERS Safety Report 4522336-6 (Version None)
Quarter: 2004Q4

REPORT INFORMATION
  Report Type: 
  Country: None (occurrence: None)
  Receive Date: 20041207
  Receipt Date: 20041125
  Transmission Date: 20050328
  Serious: Yes (Hospitalization)
  Sender: FDA-Public Use
  Company Number: 062-20785-04120051

PATIENT
  Age: 63 Year
  Sex: Male

DRUGS (5)
  1. THALIDOMIDE - PHARMION (THALIDOMIDE) (100 MILLIGRAM, CAPSULES) [Suspect]
     Indication: MULTIPLE MYELOMA
     Dosage: 100 MG, DAILY, ORAL
     Route: 048
     Dates: start: 20041018, end: 20041117
  2. CYCLOPHOSPHAMIDE [Suspect]
     Indication: MULTIPLE MYELOMA
     Dates: start: 20041018, end: 20041021
  3. IDARUBICIN (IDARUBICIN) [Suspect]
     Indication: MULTIPLE MYELOMA
     Dates: start: 20041018, end: 20041021
  4. DEXAMETHASONE [Suspect]
     Indication: MULTIPLE MYELOMA
     Dates: start: 20041018, end: 20041021
  5. PEGFILGRASTIM (PEGFILGRASTIM) [Concomitant]

REACTIONS (3)
  - EOSINOPHILIC PNEUMONIA [None]
  - FEBRILE NEUTROPENIA [None]
  - INTERSTITIAL LUNG DISEASE [None]
